FAERS Safety Report 8205799-4 (Version None)
Quarter: 2012Q1

REPORT INFORMATION
  Report Type: 
  Country: None (occurrence: None)
  Receive Date: 20120313
  Receipt Date: 20120301
  Transmission Date: 20120608
  Serious: No
  Sender: FDA-Public Use
  Company Number: US-ELI_LILLY_AND_COMPANY-US201201008811

PATIENT
  Sex: Female
  Weight: 48.073 kg

DRUGS (5)
  1. EVISTA [Concomitant]
  2. FORTEO [Suspect]
     Dosage: 20 UG, QD
     Dates: start: 20041201, end: 20061201
  3. INSULIN [Concomitant]
  4. BONIVA [Concomitant]
  5. PROLIA [Concomitant]

REACTIONS (2)
  - OSTEOPOROSIS [None]
  - SPINAL FRACTURE [None]
